FAERS Safety Report 19035945 (Version 1)
Quarter: 2021Q1

REPORT INFORMATION
  Report Type: Spontaneous
  Country: PL (occurrence: PL)
  Receive Date: 20210321
  Receipt Date: 20210321
  Transmission Date: 20210420
  Serious: Yes (Other)
  Sender: FDA-Public Use
  Company Number: PL-TEVA-2021-PL-1891743

PATIENT
  Age: 58 Year
  Sex: Female

DRUGS (4)
  1. 5?FLUOROURACIL [Suspect]
     Active Substance: FLUOROURACIL
     Indication: RECTAL CANCER
     Dosage: 116MILLIGRAM
     Route: 041
     Dates: start: 20200316, end: 20200318
  2. CALCIUM FOLINATE [Suspect]
     Active Substance: LEUCOVORIN CALCIUM
     Indication: RECTAL CANCER
     Dosage: 372MILLIGRAM
     Route: 042
     Dates: start: 20200316, end: 20200318
  3. 5?FLUOROURACIL [Suspect]
     Active Substance: FLUOROURACIL
     Dosage: 744MILLLIGRAM
     Route: 040
     Dates: start: 20200316, end: 20200318
  4. OXALIPLATIN. [Suspect]
     Active Substance: OXALIPLATIN
     Indication: RECTAL CANCER
     Dosage: 158.1MILLIGRAM
     Route: 042
     Dates: start: 20200316, end: 20200318

REACTIONS (1)
  - Neutropenia [Unknown]

NARRATIVE: CASE EVENT DATE: 20200330
